FAERS Safety Report 24096377 (Version 2)
Quarter: 2024Q3

REPORT INFORMATION
  Report Type: Report from Study
  Country: FR (occurrence: FR)
  Receive Date: 20240716
  Receipt Date: 20240927
  Transmission Date: 20241017
  Serious: Yes (Death, Life-Threatening, Hospitalization, Other)
  Sender: RANBAXY
  Company Number: FR-SUN PHARMACEUTICAL INDUSTRIES LTD-2024R1-455597

PATIENT
  Age: 49 Year
  Sex: Male
  Weight: 64 kg

DRUGS (4)
  1. PAZOPANIB [Suspect]
     Active Substance: PAZOPANIB
     Indication: Gastrointestinal surgery
     Dosage: 800 MILLIGRAM, DAILY
     Route: 065
  2. PAZOPANIB [Suspect]
     Active Substance: PAZOPANIB
     Indication: Neurofibrosarcoma
     Dosage: 1200 MILLIGRAM, DAILY
     Route: 065
  3. PENICILLIN V [Suspect]
     Active Substance: PENICILLIN V
     Indication: Gastrointestinal surgery
     Dosage: UNK
     Route: 065
  4. CYANOCOBALAMIN [Suspect]
     Active Substance: CYANOCOBALAMIN
     Indication: Gastrointestinal surgery
     Dosage: UNK
     Route: 065

REACTIONS (8)
  - Disease progression [Fatal]
  - Condition aggravated [Fatal]
  - Decreased appetite [Unknown]
  - Dyspnoea [Unknown]
  - Abdominal pain [Unknown]
  - Nodule [Unknown]
  - Carcinoid tumour [Unknown]
  - Therapeutic response decreased [Unknown]
